FAERS Safety Report 21593246 (Version 3)
Quarter: 2022Q4

REPORT INFORMATION
  Report Type: Report from Study
  Country: US (occurrence: US)
  Receive Date: 20221114
  Receipt Date: 20221222
  Transmission Date: 20230113
  Serious: Yes (Hospitalization, Other)
  Sender: FDA-Public Use
  Company Number: US-ABBVIE-4199156

PATIENT
  Age: 55 Year
  Sex: Male

DRUGS (2)
  1. IMBRUVICA [Suspect]
     Active Substance: IBRUTINIB
     Indication: B-cell lymphoma
     Route: 048
     Dates: start: 202208, end: 20221029
  2. IMBRUVICA [Suspect]
     Active Substance: IBRUTINIB
     Indication: B-cell lymphoma
     Route: 048

REACTIONS (9)
  - Cervical spinal stenosis [Unknown]
  - Neuropathy peripheral [Unknown]
  - Dysphagia [Unknown]
  - Bladder disorder [Unknown]
  - Burning sensation [Unknown]
  - Diabetes mellitus [Unknown]
  - Gait disturbance [Unknown]
  - Gastrointestinal disorder [Unknown]
  - Cataract [Unknown]

NARRATIVE: CASE EVENT DATE: 20221028
